FAERS Safety Report 12795523 (Version 1)
Quarter: 2016Q3

REPORT INFORMATION
  Report Type: Spontaneous
  Country: JP (occurrence: JP)
  Receive Date: 20160929
  Receipt Date: 20160929
  Transmission Date: 20161109
  Serious: Yes (Other)
  Sender: FDA-Public Use
  Company Number: JP-ASTRAZENECA-2016SF02317

PATIENT
  Age: 74 Year
  Sex: Female

DRUGS (5)
  1. IMPROMEN [Concomitant]
     Active Substance: BROMPERIDOL
     Dosage: 1.0MG UNKNOWN
     Route: 048
  2. AKINETON [Concomitant]
     Active Substance: BIPERIDEN HYDROCHLORIDE
     Dosage: 1.0MG UNKNOWN
     Route: 048
  3. CONTOMIN [Concomitant]
     Active Substance: CHLORPROMAZINE
     Dosage: 25.0MG UNKNOWN
     Route: 048
  4. FORXIGA [Suspect]
     Active Substance: DAPAGLIFLOZIN
     Indication: TYPE 2 DIABETES MELLITUS
     Route: 048
     Dates: start: 20151211, end: 20160915
  5. AMARYL [Concomitant]
     Active Substance: GLIMEPIRIDE
     Dosage: 1.0MG UNKNOWN
     Route: 065

REACTIONS (1)
  - Cerebral infarction [Recovered/Resolved]

NARRATIVE: CASE EVENT DATE: 20160914
